FAERS Safety Report 12876336 (Version 1)
Quarter: 2016Q4

REPORT INFORMATION
  Report Type: Spontaneous
  Country: US (occurrence: US)
  Receive Date: 20161021
  Receipt Date: 20161021
  Transmission Date: 20170207
  Serious: Yes (Disabling)
  Sender: FDA-Public Use
  Company Number: None

PATIENT
  Age: 16 Year
  Sex: Female
  Weight: 135 kg

DRUGS (2)
  1. NADALOL [Concomitant]
  2. OMALIZUMAB [Suspect]
     Active Substance: OMALIZUMAB
     Indication: URTICARIA
     Dosage: SUBCUTANEOUS 2 INJECTION(S)?
     Route: 058
     Dates: start: 20160726, end: 20160824

REACTIONS (2)
  - Movement disorder [None]
  - Arthralgia [None]

NARRATIVE: CASE EVENT DATE: 20160824
